FAERS Safety Report 6017421-6 (Version None)
Quarter: 2008Q4

REPORT INFORMATION
  Report Type: 
  Country: None (occurrence: None)
  Receive Date: 20081223
  Receipt Date: 20081220
  Transmission Date: 20090506
  Serious: Yes (Death, Hospitalization)
  Sender: FDA-Public Use
  Company Number: PHHY2008MX14738

PATIENT
  Age: 73 Year
  Sex: Female

DRUGS (2)
  1. EXJADE [Suspect]
     Indication: IRON OVERLOAD
     Dosage: 500 MG, QD
     Route: 048
     Dates: start: 20080601, end: 20080601
  2. EXJADE [Suspect]
     Dosage: 1 TABLET PER DAY
     Dates: start: 20081101

REACTIONS (7)
  - ANAEMIA [None]
  - ASTHENIA [None]
  - BLOOD PH ABNORMAL [None]
  - DEATH [None]
  - HYPERGLYCAEMIA [None]
  - OEDEMA PERIPHERAL [None]
  - RESPIRATORY DISORDER [None]
